FAERS Safety Report 19230581 (Version 1)
Quarter: 2021Q2

REPORT INFORMATION
  Report Type: Spontaneous
  Country: US (occurrence: US)
  Receive Date: 20210507
  Receipt Date: 20210507
  Transmission Date: 20210717
  Serious: Yes (Other)
  Sender: FDA-Public Use
  Company Number: US-ASTELLAS-2021US016307

PATIENT
  Age: 75 Year
  Sex: Male

DRUGS (2)
  1. PADCEV [Suspect]
     Active Substance: ENFORTUMAB VEDOTIN-EJFV
     Indication: TRANSITIONAL CELL CARCINOMA METASTATIC
     Route: 065
     Dates: start: 202004, end: 20210204
  2. PADCEV [Suspect]
     Active Substance: ENFORTUMAB VEDOTIN-EJFV
     Dosage: UNK UNK, UNKNOWN FREQ.
     Route: 065

REACTIONS (4)
  - Lung disorder [Unknown]
  - Metastases to liver [Unknown]
  - Neuropathy peripheral [Recovering/Resolving]
  - Fatigue [Unknown]

NARRATIVE: CASE EVENT DATE: 20201120
